FAERS Safety Report 7152625-0 (Version None)
Quarter: 2010Q4

REPORT INFORMATION
  Report Type: 
  Country: None (occurrence: None)
  Receive Date: 20101209
  Receipt Date: 20101209
  Transmission Date: 20110411
  Serious: Yes (Hospitalization)
  Sender: FDA-Public Use
  Company Number: None

PATIENT
  Age: 50 Year
  Sex: Female
  Weight: 73.4827 kg

DRUGS (11)
  1. ZIPRASIDONE HCL [Suspect]
     Indication: SCHIZOAFFECTIVE DISORDER
     Dosage: 80 MG BID PO
     Route: 048
     Dates: start: 20101018
  2. ASPIRIN [Concomitant]
  3. CITALOPRAM [Concomitant]
  4. DEPAKOTE [Concomitant]
  5. COLACE [Concomitant]
  6. LORATADINE [Concomitant]
  7. OMEPRAZOLE [Concomitant]
  8. PROPRANOLOL [Concomitant]
  9. POTASSIUM CHLORIDE [Concomitant]
  10. FUROSEMIDE [Concomitant]
  11. ATIVAN [Concomitant]

REACTIONS (2)
  - ABNORMAL BEHAVIOUR [None]
  - TREATMENT NONCOMPLIANCE [None]
